FAERS Safety Report 10073701 (Version 1)
Quarter: 2014Q2

REPORT INFORMATION
  Report Type: Spontaneous
  Country: US (occurrence: US)
  Receive Date: 20140411
  Receipt Date: 20140411
  Transmission Date: 20141212
  Serious: Yes (Other)
  Sender: FDA-Public Use
  Company Number: CHPA2014US005081

PATIENT
  Age: 37 Year
  Sex: Female

DRUGS (4)
  1. EXCEDRIN TENSION HEADACHE [Suspect]
     Indication: MIGRAINE
     Dosage: UNK, PRN
     Route: 048
  2. EXCEDRIN TENSION HEADACHE [Suspect]
     Indication: OFF LABEL USE
  3. EXCEDRIN EXTRA STRENGTH [Suspect]
     Dosage: UNK, PRN
     Route: 048
  4. EXCEDRIN MIGRAINE [Suspect]
     Dosage: UNK, PRN
     Route: 048

REACTIONS (7)
  - Coeliac disease [Not Recovered/Not Resolved]
  - Abdominal distension [Not Recovered/Not Resolved]
  - Abdominal discomfort [Not Recovered/Not Resolved]
  - Vertigo [Not Recovered/Not Resolved]
  - Tinnitus [Not Recovered/Not Resolved]
  - Arthralgia [Not Recovered/Not Resolved]
  - Nausea [Not Recovered/Not Resolved]
